FAERS Safety Report 19468545 (Version 2)
Quarter: 2021Q3

REPORT INFORMATION
  Report Type: Spontaneous
  Country: US (occurrence: US)
  Receive Date: 20210628
  Receipt Date: 20210928
  Transmission Date: 20211014
  Serious: Yes (Other)
  Sender: FDA-Public Use
  Company Number: ALC2021US003909

PATIENT
  Sex: Male

DRUGS (1)
  1. PATADAY ONCE DAILY RELIEF [Suspect]
     Active Substance: OLOPATADINE HYDROCHLORIDE
     Indication: PRODUCT USED FOR UNKNOWN INDICATION
     Dosage: UNK
     Route: 047

REACTIONS (5)
  - Conjunctival haemorrhage [Recovered/Resolved]
  - Accidental overdose [Recovered/Resolved]
  - Product container issue [Unknown]
  - Ocular hyperaemia [Recovered/Resolved]
  - Product closure issue [Unknown]

NARRATIVE: CASE EVENT DATE: 20210609
